FAERS Safety Report 8534464-9 (Version None)
Quarter: 2012Q3

REPORT INFORMATION
  Report Type: 
  Country: None (occurrence: None)
  Receive Date: 20120712
  Receipt Date: 20120703
  Transmission Date: 20120928
  Serious: Yes (Hospitalization)
  Sender: FDA-Public Use
  Company Number: 136158

PATIENT
  Age: 71 Year
  Sex: Male
  Weight: 76 kg

DRUGS (1)
  1. LEUCOVORIN CALCIUM [Suspect]
     Indication: COLORECTAL CANCER METASTATIC
     Dosage: 400MG/M2 ON DAY ONE EVERY 14 DAYS
     Dates: start: 20120216, end: 20120522

REACTIONS (5)
  - FALL [None]
  - SUBDURAL HAEMATOMA [None]
  - DISEASE PROGRESSION [None]
  - NEUROPATHIC ARTHROPATHY [None]
  - PYREXIA [None]
